FAERS Safety Report 18608737 (Version 1)
Quarter: 2020Q4

REPORT INFORMATION
  Report Type: Spontaneous
  Country: US (occurrence: US)
  Receive Date: 20201213
  Receipt Date: 20201213
  Transmission Date: 20210114
  Serious: Yes (Other)
  Sender: FDA-Public Use
  Company Number: US-UCBSA-2020049969

PATIENT
  Age: 25 Year
  Sex: Male

DRUGS (2)
  1. BRIVIACT [Suspect]
     Active Substance: BRIVARACETAM
     Indication: OFF LABEL USE
  2. BRIVIACT [Suspect]
     Active Substance: BRIVARACETAM
     Indication: GENERALISED TONIC-CLONIC SEIZURE
     Dosage: 0.575 MILLILITER, 2X/DAY (BID)
     Dates: start: 20200815

REACTIONS (2)
  - Urinary retention [Unknown]
  - Off label use [Unknown]

NARRATIVE: CASE EVENT DATE: 20200815
